FAERS Safety Report 16783171 (Version 1)
Quarter: 2019Q3

REPORT INFORMATION
  Report Type: Report from Study
  Country: None (occurrence: US)
  Receive Date: 20190907
  Receipt Date: 20190907
  Transmission Date: 20191005
  Serious: Yes (Hospitalization, Other)
  Sender: FDA-Public Use
  Company Number: US-ABBVIE-19K-163-2912635-00

PATIENT
  Age: 47 Year
  Sex: Female

DRUGS (10)
  1. GABAPENTIN. [Concomitant]
     Active Substance: GABAPENTIN
     Indication: PRODUCT USED FOR UNKNOWN INDICATION
  2. PONATINIB [Suspect]
     Active Substance: PONATINIB
     Route: 048
  3. AMBIEN [Concomitant]
     Active Substance: ZOLPIDEM TARTRATE
     Indication: PRODUCT USED FOR UNKNOWN INDICATION
  4. PONATINIB [Suspect]
     Active Substance: PONATINIB
     Route: 048
  5. FAMVIR [Concomitant]
     Active Substance: FAMCICLOVIR
     Indication: PRODUCT USED FOR UNKNOWN INDICATION
  6. PONATINIB [Suspect]
     Active Substance: PONATINIB
     Indication: CHRONIC MYELOID LEUKAEMIA
     Route: 048
     Dates: start: 20170818
  7. COLDCALM [Concomitant]
     Active Substance: HOMEOPATHICS
     Indication: PRODUCT USED FOR UNKNOWN INDICATION
  8. PERCOCET [Concomitant]
     Active Substance: ACETAMINOPHEN\OXYCODONE HYDROCHLORIDE
     Indication: PRODUCT USED FOR UNKNOWN INDICATION
  9. DEPAKOTE [Suspect]
     Active Substance: DIVALPROEX SODIUM
     Indication: PRODUCT USED FOR UNKNOWN INDICATION
     Route: 065
  10. COZAAR [Concomitant]
     Active Substance: LOSARTAN POTASSIUM
     Indication: PRODUCT USED FOR UNKNOWN INDICATION

REACTIONS (19)
  - Hospitalisation [Unknown]
  - Hospitalisation [Recovered/Resolved]
  - Cough [Unknown]
  - Constipation [Unknown]
  - Abdominal pain [Unknown]
  - Head injury [Unknown]
  - Flank pain [Unknown]
  - Abdominal pain upper [Unknown]
  - Pulmonary oedema [Unknown]
  - Post herpetic neuralgia [Unknown]
  - Drug level decreased [Unknown]
  - Fatigue [Unknown]
  - Dry skin [Unknown]
  - Seizure [Unknown]
  - Uterine leiomyoma [Unknown]
  - Rash [Unknown]
  - Fall [Unknown]
  - Cardiomegaly [Unknown]
  - Platelet count increased [Unknown]

NARRATIVE: CASE EVENT DATE: 201709
